FAERS Safety Report 7820050-2 (Version None)
Quarter: 2011Q4

REPORT INFORMATION
  Report Type: 
  Country: None (occurrence: None)
  Receive Date: 20111018
  Receipt Date: 20111011
  Transmission Date: 20120403
  Serious: Yes (Life-Threatening, Hospitalization)
  Sender: FDA-Public Use
  Company Number: DE-UCBSA-036768

PATIENT
  Age: 58 Year
  Sex: Male
  Weight: 98 kg

DRUGS (5)
  1. CORTISONE ACETATE [Concomitant]
  2. METFORMIN HYDROCHLORIDE [Concomitant]
  3. PREDNISONE [Concomitant]
     Route: 048
  4. ONGLYZA [Concomitant]
  5. CIMZIA [Suspect]
     Indication: RHEUMATOID ARTHRITIS
     Route: 058
     Dates: start: 20110408, end: 20110101

REACTIONS (2)
  - ABSCESS LIMB [None]
  - ARTHRITIS BACTERIAL [None]
